FAERS Safety Report 13292504 (Version 1)
Quarter: 2017Q1

REPORT INFORMATION
  Report Type: Spontaneous
  Country: US (occurrence: US)
  Receive Date: 20170303
  Receipt Date: 20170303
  Transmission Date: 20170428
  Serious: Yes (Disabling)
  Sender: FDA-Public Use
  Company Number: None

PATIENT
  Age: 68 Year
  Sex: Female
  Weight: 64.47 kg

DRUGS (11)
  1. MIRTAZAPINE. [Concomitant]
     Active Substance: MIRTAZAPINE
  2. ADVAIR 500 [Concomitant]
  3. ALPRAZOLAM. [Concomitant]
     Active Substance: ALPRAZOLAM
  4. ZOLPIDEM [Concomitant]
     Active Substance: ZOLPIDEM\ZOLPIDEM TARTRATE
  5. METOPROLOL TARTRATE. [Concomitant]
     Active Substance: METOPROLOL TARTRATE
  6. BUSPIRONE [Concomitant]
     Active Substance: BUSPIRONE HYDROCHLORIDE
  7. ALEVE [Concomitant]
     Active Substance: NAPROXEN SODIUM
  8. LOSARTAN POTASIUM 100MG TAB [Suspect]
     Active Substance: LOSARTAN POTASSIUM
     Indication: HYPERTENSION
     Dosage: 100MG 1 PILL ONE A DAY MOUTH
     Route: 048
     Dates: start: 20130128, end: 20160422
  9. ALENDRONATE [Concomitant]
     Active Substance: ALENDRONATE SODIUM
  10. AZALASTINE [Concomitant]
  11. CENTRUM SILVER -WOMEN [Concomitant]

REACTIONS (7)
  - Fatigue [None]
  - Sinus disorder [None]
  - Drug ineffective [None]
  - Hypertension [None]
  - Decreased activity [None]
  - Irritable bowel syndrome [None]
  - Oropharyngeal pain [None]
